FAERS Safety Report 16716916 (Version 1)
Quarter: 2019Q3

REPORT INFORMATION
  Report Type: Spontaneous
  Country: RU (occurrence: RU)
  Receive Date: 20190819
  Receipt Date: 20190819
  Transmission Date: 20191005
  Serious: Yes (Other)
  Sender: FDA-Public Use
  Company Number: RU-NOVOPROD-679630

PATIENT
  Age: 2 Day
  Sex: Female
  Weight: 4 kg

DRUGS (2)
  1. TRESIBA [Suspect]
     Active Substance: INSULIN DEGLUDEC
     Dosage: 32 IU, QD
     Route: 064
     Dates: end: 20190712
  2. TRESIBA [Suspect]
     Active Substance: INSULIN DEGLUDEC
     Dosage: 22-24 UNITS
     Route: 064
     Dates: start: 20181013

REACTIONS (3)
  - Neonatal hepatomegaly [Unknown]
  - Diabetic foetopathy [Unknown]
  - Foetal exposure during pregnancy [Recovered/Resolved]

NARRATIVE: CASE EVENT DATE: 20181013
